FAERS Safety Report 10650225 (Version 1)
Quarter: 2014Q4

REPORT INFORMATION
  Report Type: Spontaneous
  Country: IT (occurrence: IT)
  Receive Date: 20141212
  Receipt Date: 20141212
  Transmission Date: 20150529
  Serious: Yes (Hospitalization, Other)
  Sender: FDA-Public Use
  Company Number: IT-GLAXOSMITHKLINE-IT2014GSK031890

PATIENT
  Age: 38 Year
  Sex: Female

DRUGS (6)
  1. WELLBUTRIN [Suspect]
     Active Substance: BUPROPION HYDROCHLORIDE
     Indication: PRODUCT USED FOR UNKNOWN INDICATION
     Dosage: 5 UNK, UNK
     Route: 048
     Dates: start: 20141029, end: 20141029
  2. SEROQUEL [Suspect]
     Active Substance: QUETIAPINE FUMARATE
     Indication: PRODUCT USED FOR UNKNOWN INDICATION
     Dosage: 5 UNK, UNK
     Dates: start: 20141029, end: 20141029
  3. TRITTICO [Suspect]
     Active Substance: TRAZODONE HYDROCHLORIDE
     Indication: PRODUCT USED FOR UNKNOWN INDICATION
     Dosage: 5 UNK, UNK
     Dates: start: 20141029, end: 20141029
  4. FLUOXETINE [Suspect]
     Active Substance: FLUOXETINE\FLUOXETINE HYDROCHLORIDE
     Indication: PRODUCT USED FOR UNKNOWN INDICATION
     Dosage: 5 UNK, UNK
     Dates: start: 20141029, end: 20141029
  5. TOLEP [Suspect]
     Active Substance: OXCARBAZEPINE
     Indication: PRODUCT USED FOR UNKNOWN INDICATION
     Dosage: 5 UNK, UNK
     Dates: start: 20141029, end: 20141029
  6. TOPAMAX [Suspect]
     Active Substance: TOPIRAMATE
     Indication: PRODUCT USED FOR UNKNOWN INDICATION
     Dosage: 5 UNK, UNK
     Dates: start: 20141029, end: 20141029

REACTIONS (4)
  - Drug abuse [Unknown]
  - Vomiting [Unknown]
  - Suicide attempt [Unknown]
  - Coma [Unknown]

NARRATIVE: CASE EVENT DATE: 20141029
